FAERS Safety Report 5601013-4 (Version None)
Quarter: 2008Q1

REPORT INFORMATION
  Report Type: 
  Country: None (occurrence: None)
  Receive Date: 20080118
  Receipt Date: 20080104
  Transmission Date: 20080703
  Serious: Yes (Death)
  Sender: FDA-Public Use
  Company Number: 2008000934

PATIENT
  Age: 55 Year
  Sex: Male

DRUGS (1)
  1. HYDROGEN PEROXIDE (HYDROGEN PEROXIDE) [Suspect]
     Dosage: ORAL
     Route: 048

REACTIONS (1)
  - DRUG TOXICITY [None]
